FAERS Safety Report 4319119-9 (Version None)
Quarter: 2004Q1

REPORT INFORMATION
  Report Type: 
  Country: None (occurrence: None)
  Receive Date: 20040318
  Receipt Date: 20040311
  Transmission Date: 20041129
  Serious: Yes (Death)
  Sender: FDA-Public Use
  Company Number: WAES 0403ITA00011

PATIENT
  Age: 75 Year
  Sex: Male

DRUGS (7)
  1. [COMPOSITION UNSPECIFIED] [Concomitant]
  2. [COMPOSITION UNSPECIFIED] [Concomitant]
  3. [COMPOSITION UNSPECIFIED] [Concomitant]
  4. FOSAMAX [Suspect]
     Indication: FRACTURE
     Route: 048
     Dates: start: 20020101, end: 20020101
  5. FOSAMAX [Suspect]
     Indication: OSTEOPOROSIS
     Route: 048
     Dates: start: 20020101, end: 20020101
  6. ANTIMICROBIAL (UNSPECIFIED) [Concomitant]
  7. CORTICOSTEROIDS (UNSPECIFIED) [Concomitant]

REACTIONS (2)
  - CARDIAC ARREST [None]
  - CONGESTIVE CARDIOMYOPATHY [None]
